FAERS Safety Report 8947679 (Version 1)
Quarter: 2012Q4

REPORT INFORMATION
  Report Type: 
  Country: US (occurrence: US)
  Receive Date: 20121205
  Receipt Date: 20121205
  Transmission Date: 20130627
  Serious: No
  Sender: FDA-Public Use
  Company Number: US-B.I. PHARMACEUTICALS,INC./RIDGEFIELD-2007-BP-26300BP

PATIENT
  Sex: Male
  Weight: 90 kg

DRUGS (1)
  1. MIRAPEX [Suspect]
     Indication: PARKINSON^S DISEASE
     Route: 048
     Dates: start: 20020616, end: 20051229

REACTIONS (6)
  - Pathological gambling [Not Recovered/Not Resolved]
  - Impulse-control disorder [Unknown]
  - Compulsive shopping [Unknown]
  - Hypersexuality [Unknown]
  - Hyperphagia [Unknown]
  - Hypomania [Unknown]
